FAERS Safety Report 11301647 (Version 1)
Quarter: 2015Q3

REPORT INFORMATION
  Report Type: Spontaneous
  Country: ES (occurrence: None)
  Receive Date: 20150722
  Receipt Date: 20150722
  Transmission Date: 20151125
  Serious: Yes (Other)
  Sender: FDA-Public Use
  Company Number: 2015HINLIT0574

PATIENT
  Age: 66 Year
  Sex: Female

DRUGS (1)
  1. SIMVASTATIN (SIMVASTATIN) UNKNOWN, UNKNOWN [Suspect]
     Active Substance: SIMVASTATIN
     Indication: PRODUCT USED FOR UNKNOWN INDICATION

REACTIONS (3)
  - Hepatotoxicity [None]
  - Antinuclear antibody increased [None]
  - Liver injury [None]
